FAERS Safety Report 5535877-X (Version None)
Quarter: 2007Q4

REPORT INFORMATION
  Report Type: 
  Country: None (occurrence: None)
  Receive Date: 20071206
  Receipt Date: 20070622
  Transmission Date: 20080405
  Serious: Yes (Hospitalization)
  Sender: FDA-Public Use
  Company Number: US-AMGEN-US226649

PATIENT
  Sex: Female
  Weight: 40.9 kg

DRUGS (8)
  1. ENBREL [Suspect]
     Indication: RHEUMATOID ARTHRITIS
     Route: 058
     Dates: start: 20020401, end: 20070515
  2. ACTONEL [Concomitant]
     Route: 048
  3. TOPROL-XL [Concomitant]
     Route: 048
  4. DIGOXIN [Concomitant]
  5. POTASSIUM CHLORIDE [Concomitant]
  6. LASIX [Concomitant]
     Route: 048
  7. IMDUR [Concomitant]
     Route: 048
  8. LEVOPHED [Concomitant]
     Route: 041
     Dates: start: 20070501, end: 20070501

REACTIONS (2)
  - URINARY TRACT INFECTION [None]
  - UROSEPSIS [None]
